FAERS Safety Report 8757968 (Version 1)
Quarter: 2012Q4

REPORT INFORMATION
  Report Type: 
  Country: BR (occurrence: BR)
  Receive Date: 20120828
  Receipt Date: 20120828
  Transmission Date: 20130627
  Serious: Yes (Other)
  Sender: FDA-Public Use
  Company Number: PHHY2012BR073663

PATIENT
  Sex: Male

DRUGS (2)
  1. RASILEZ AMLO [Suspect]
     Indication: HYPERTENSION
     Dosage: 300/10 mg, BID
  2. RASILEZ AMLO [Suspect]
     Dosage: 300/10 mg, QD

REACTIONS (2)
  - Diabetes mellitus [Recovering/Resolving]
  - Oedema peripheral [Recovering/Resolving]
